FAERS Safety Report 25419003 (Version 2)
Quarter: 2025Q3

REPORT INFORMATION
  Report Type: Spontaneous
  Country: US (occurrence: US)
  Receive Date: 20250610
  Receipt Date: 20250703
  Transmission Date: 20251021
  Serious: No
  Sender: MERCK SHARP & DOHME LLC
  Company Number: US-009507513-2290182

PATIENT
  Age: 44 Year
  Sex: Male

DRUGS (3)
  1. TEMOZOLOMIDE [Suspect]
     Active Substance: TEMOZOLOMIDE
     Indication: Metastatic malignant melanoma
  2. CARBOPLATIN [Concomitant]
     Active Substance: CARBOPLATIN
  3. TRAMETINIB [Concomitant]
     Active Substance: TRAMETINIB

REACTIONS (1)
  - Product use in unapproved indication [Unknown]
